FAERS Safety Report 5780894-8 (Version None)
Quarter: 2008Q2

REPORT INFORMATION
  Report Type: 
  Country: None (occurrence: None)
  Receive Date: 20080620
  Receipt Date: 20080606
  Transmission Date: 20081010
  Serious: Yes (Other)
  Sender: FDA-Public Use
  Company Number: PHHY2008FI10137

PATIENT
  Sex: Female

DRUGS (3)
  1. TEGRETOL [Suspect]
     Indication: CONVULSION
     Dosage: 400MG
     Dates: start: 20070309, end: 20070831
  2. TEGRETOL [Suspect]
     Dosage: 400MG
     Dates: start: 20080422, end: 20080512
  3. THYROXIN [Concomitant]
     Dosage: UNK
     Dates: start: 19990101

REACTIONS (1)
  - MYALGIA [None]
